FAERS Safety Report 5715321-X (Version None)
Quarter: 2008Q2

REPORT INFORMATION
  Report Type: 
  Country: None (occurrence: None)
  Receive Date: 20080423
  Receipt Date: 20080411
  Transmission Date: 20081010
  Serious: Yes (Other)
  Sender: FDA-Public Use
  Company Number: CA-PFIZER INC-2008032679

PATIENT
  Age: 50 Year
  Sex: Male

DRUGS (4)
  1. CHAMPIX [Suspect]
     Route: 048
  2. AMOXICILLIN + CLAVULANATE POTASSIUM [Concomitant]
  3. PREDNISONE [Concomitant]
  4. SPIRIVA [Concomitant]

REACTIONS (3)
  - BLISTER [None]
  - GAIT DISTURBANCE [None]
  - PRURITUS [None]
